FAERS Safety Report 15210489 (Version 3)
Quarter: 2018Q3

REPORT INFORMATION
  Report Type: Spontaneous
  Country: US (occurrence: US)
  Receive Date: 20180727
  Receipt Date: 20180904
  Transmission Date: 20181010
  Serious: Yes (Other)
  Sender: FDA-Public Use
  Company Number: PHEH2018US029991

PATIENT
  Age: 71 Year
  Sex: Female

DRUGS (5)
  1. AFINITOR [Suspect]
     Active Substance: EVEROLIMUS
     Indication: RENAL CANCER
     Dosage: 2.5 MG, QD
     Route: 048
     Dates: start: 20180313, end: 201807
  2. LENVATINIB [Suspect]
     Active Substance: LENVATINIB
     Dosage: 8 MG, QD (1 MONTHS)
     Route: 048
     Dates: start: 20180612, end: 201807
  3. LENVATINIB [Suspect]
     Active Substance: LENVATINIB
     Indication: RENAL CANCER
     Dosage: 8 MG, QD
     Route: 048
     Dates: start: 20180313, end: 2018
  4. AFINITOR [Suspect]
     Active Substance: EVEROLIMUS
     Dosage: 2.5 MG, QD
     Route: 048
     Dates: start: 2018
  5. LENVATINIB [Suspect]
     Active Substance: LENVATINIB
     Dosage: 8 MG, QD
     Route: 048
     Dates: start: 2018

REACTIONS (7)
  - Blood pressure increased [Unknown]
  - Peripheral swelling [Recovered/Resolved]
  - Red blood cell count decreased [Unknown]
  - Oedema peripheral [Recovered/Resolved]
  - Periorbital oedema [Recovering/Resolving]
  - Protein urine present [Recovered/Resolved]
  - Fatigue [Recovered/Resolved]

NARRATIVE: CASE EVENT DATE: 201803
